FAERS Safety Report 4978965-9 (Version None)
Quarter: 2006Q2

REPORT INFORMATION
  Report Type: 
  Country: None (occurrence: None)
  Receive Date: 20060417
  Receipt Date: 20060410
  Transmission Date: 20061013
  Serious: Yes (Hospitalization, Other)
  Sender: FDA-Public Use
  Company Number: 2006048757

PATIENT
  Age: 79 Year
  Sex: Male

DRUGS (6)
  1. SPIRONOLACTONE [Suspect]
     Indication: ILL-DEFINED DISORDER
     Dosage: 100 MG (100 MG, DAILY INTERVAL: EVERY DAY), ORAL
     Route: 048
     Dates: start: 20060130, end: 20060222
  2. FUROSEMIDE [Suspect]
     Indication: ILL-DEFINED DISORDER
     Dosage: 40 MG (40 MG, DAILY  INTERVAL: EVERY DAY), ORAL
     Route: 048
     Dates: start: 20060130, end: 20060222
  3. INSULIN [Concomitant]
  4. IPRATROPIUM BROMIDE [Concomitant]
  5. GALENIC/FLUTICASONE/SALMETEROL/ (FLUTICASONE, SALMETEROL) [Concomitant]
  6. OMEPRAZOLE [Concomitant]

REACTIONS (5)
  - BACTERIAL INFECTION [None]
  - BLOOD CULTURE POSITIVE [None]
  - BLOOD UREA INCREASED [None]
  - DRUG INTERACTION [None]
  - ENCEPHALOPATHY [None]
